FAERS Safety Report 25722286 (Version 2)
Quarter: 2025Q3

REPORT INFORMATION
  Report Type: Spontaneous
  Country: CH (occurrence: CH)
  Receive Date: 20250825
  Receipt Date: 20250909
  Transmission Date: 20251020
  Serious: Yes (Other)
  Sender: INCYTE
  Company Number: CH-EVENT-003963

PATIENT

DRUGS (4)
  1. TAFASITAMAB [Suspect]
     Active Substance: TAFASITAMAB
     Indication: Follicular lymphoma
  2. TAFASITAMAB [Suspect]
     Active Substance: TAFASITAMAB
  3. LENALIDOMIDE [Suspect]
     Active Substance: LENALIDOMIDE
     Indication: Product used for unknown indication
     Dosage: 10 MILLIGRAM, QD (1 WEEK OFF, 3 WEEKS ON)
  4. RITUXIMAB [Concomitant]
     Active Substance: RITUXIMAB
     Indication: Product used for unknown indication

REACTIONS (4)
  - Squamous cell carcinoma [Recovered/Resolved]
  - Haematotoxicity [Recovered/Resolved]
  - Hypoacusis [Recovered/Resolved]
  - Off label use [Unknown]
